FAERS Safety Report 7018044-2 (Version None)
Quarter: 2010Q3

REPORT INFORMATION
  Report Type: 
  Country: None (occurrence: None)
  Receive Date: 20100928
  Receipt Date: 20100920
  Transmission Date: 20110219
  Serious: Yes (Other)
  Sender: FDA-Public Use
  Company Number: PHHY2010AT58637

PATIENT
  Age: 60 Year
  Sex: Female
  Weight: 80 kg

DRUGS (1)
  1. ACLASTA [Suspect]
     Indication: OSTEOPOROSIS
     Dosage: 5MG /100 ML
     Route: 042
     Dates: start: 20100819

REACTIONS (5)
  - DYSPNOEA [None]
  - LARYNX IRRITATION [None]
  - PYREXIA [None]
  - THROAT IRRITATION [None]
  - UNDERDOSE [None]
